FAERS Safety Report 25166859 (Version 2)
Quarter: 2025Q2

REPORT INFORMATION
  Report Type: Spontaneous
  Country: IT (occurrence: IT)
  Receive Date: 20250407
  Receipt Date: 20250410
  Transmission Date: 20250717
  Serious: Yes (Other)
  Sender: PFIZER
  Company Number: IT-PFIZER INC-PV202500039809

PATIENT
  Age: 49 Year
  Sex: Male

DRUGS (3)
  1. BEVACIZUMAB [Suspect]
     Active Substance: BEVACIZUMAB
     Indication: Diabetic retinal oedema
     Route: 031
  2. POVIDONE-IODINE [Suspect]
     Active Substance: POVIDONE-IODINE
     Indication: Infection prophylaxis
     Route: 061
  3. BETAMETHASONE\CHLORAMPHENICOL [Suspect]
     Active Substance: BETAMETHASONE\CHLORAMPHENICOL
     Indication: Diabetic retinal oedema
     Route: 047

REACTIONS (4)
  - Drug hypersensitivity [Recovered/Resolved]
  - Dermatitis contact [Recovered/Resolved]
  - Systemic contact dermatitis [Recovered/Resolved]
  - Off label use [Unknown]
